FAERS Safety Report 20518715 (Version 2)
Quarter: 2022Q1

REPORT INFORMATION
  Report Type: Spontaneous
  Country: US (occurrence: US)
  Receive Date: 20220225
  Receipt Date: 20220227
  Transmission Date: 20220423
  Serious: Yes (Death)
  Sender: FDA-Public Use
  Company Number: US-BAYER-2022A027227

PATIENT
  Age: 53 Year
  Sex: Male

DRUGS (4)
  1. RIVAROXABAN [Suspect]
     Active Substance: RIVAROXABAN
     Indication: Atrial fibrillation
     Route: 048
  2. PANTOPRAZOLE [Concomitant]
     Active Substance: PANTOPRAZOLE
  3. CLONAZEPAM [Concomitant]
     Active Substance: CLONAZEPAM
  4. MIRTAZAPINE [Concomitant]
     Active Substance: MIRTAZAPINE

REACTIONS (7)
  - Haemorrhagic infarction [Fatal]
  - Brain injury [Fatal]
  - Cerebral infarction [Fatal]
  - Cerebral haemorrhage [Fatal]
  - Upper gastrointestinal haemorrhage [Fatal]
  - Pericardial haemorrhage [Fatal]
  - Haemoptysis [Unknown]
